FAERS Safety Report 8618622-0 (Version None)
Quarter: 2012Q3

REPORT INFORMATION
  Report Type: 
  Country: None (occurrence: None)
  Receive Date: 20120814
  Receipt Date: 20120814
  Transmission Date: 20120928
  Serious: Yes (Hospitalization)
  Sender: FDA-Public Use
  Company Number: None

PATIENT
  Age: 63 Year
  Sex: Female
  Weight: 182.346 kg

DRUGS (1)
  1. XARELTO [Suspect]
     Indication: ATRIAL FIBRILLATION
     Dosage: 120 MG AT BEDTIME DAILY PO
     Route: 048
     Dates: start: 20111228, end: 20120805

REACTIONS (5)
  - DEPRESSED MOOD [None]
  - HAEMORRHAGE [None]
  - FEELING OF BODY TEMPERATURE CHANGE [None]
  - FEAR [None]
  - HAEMOGLOBIN DECREASED [None]
